FAERS Safety Report 4348139-3 (Version None)
Quarter: 2004Q1

REPORT INFORMATION
  Report Type: 
  Country: None (occurrence: None)
  Receive Date: 20040325
  Receipt Date: 20040212
  Transmission Date: 20041129
  Serious: No
  Sender: FDA-Public Use
  Company Number: USA040259167

PATIENT
  Sex: Female

DRUGS (10)
  1. FORTEO [Suspect]
     Dates: start: 20040130
  2. ZELNORM (ZLENORM) [Concomitant]
  3. ZOCOR [Concomitant]
  4. LOPRESSOR [Concomitant]
  5. ZIRTEC (CETIRIZINE HYDROCHLORIDE) [Concomitant]
  6. ADVAIR DISKUS 100/50 [Concomitant]
  7. PREVACID [Concomitant]
  8. COMBIVENT [Concomitant]
  9. ASPIRIN [Concomitant]
  10. CALCIUM [Concomitant]

REACTIONS (3)
  - MUSCULAR WEAKNESS [None]
  - SWELLING [None]
  - WEIGHT INCREASED [None]
